FAERS Safety Report 18020004 (Version 1)
Quarter: 2020Q3

REPORT INFORMATION
  Report Type: Spontaneous
  Country: FR (occurrence: FR)
  Receive Date: 20200714
  Receipt Date: 20200714
  Transmission Date: 20201103
  Serious: Yes (Hospitalization)
  Sender: FDA-Public Use
  Company Number: FR-SUN PHARMACEUTICAL INDUSTRIES LTD-2020RR-253569

PATIENT
  Age: 44 Year
  Sex: Male

DRUGS (4)
  1. SERESTA 50 MG, COMPRIME SECABLE [Suspect]
     Active Substance: OXAZEPAM
     Indication: PRODUCT USED FOR UNKNOWN INDICATION
     Dosage: INCONNUE ()
     Route: 048
     Dates: start: 20200612, end: 20200612
  2. TEGRETOL [Suspect]
     Active Substance: CARBAMAZEPINE
     Indication: PRODUCT USED FOR UNKNOWN INDICATION
     Dosage: INCONNUE ()
     Route: 048
     Dates: start: 20200612, end: 20200612
  3. THERALENE [Suspect]
     Active Substance: TRIMEPRAZINE
     Indication: PRODUCT USED FOR UNKNOWN INDICATION
     Dosage: INCONNUE ()
     Route: 048
     Dates: start: 20200612, end: 20200612
  4. PAROXETINE. [Suspect]
     Active Substance: PAROXETINE
     Indication: PRODUCT USED FOR UNKNOWN INDICATION
     Dosage: INCONNUE ()
     Route: 048
     Dates: start: 20200612, end: 20200612

REACTIONS (2)
  - Asthenia [Recovered/Resolved]
  - Sleep disorder [Recovered/Resolved]

NARRATIVE: CASE EVENT DATE: 20200612
